FAERS Safety Report 7133343-1 (Version None)
Quarter: 2010Q4

REPORT INFORMATION
  Report Type: 
  Country: None (occurrence: None)
  Receive Date: 20101202
  Receipt Date: 20101119
  Transmission Date: 20110411
  Serious: Yes (Hospitalization)
  Sender: FDA-Public Use
  Company Number: AT-WATSON-2010-15242

PATIENT
  Age: 15 Year
  Sex: Female

DRUGS (1)
  1. MINOCYCLINE HCL [Suspect]
     Indication: FOLLICULITIS
     Dosage: 50 MG, DAILY

REACTIONS (2)
  - CENTRAL NERVOUS SYSTEM LESION [None]
  - CYTOTOXIC OEDEMA [None]
